FAERS Safety Report 9795825 (Version 1)
Quarter: 2014Q1

REPORT INFORMATION
  Report Type: Spontaneous
  Country: US (occurrence: US)
  Receive Date: 20140103
  Receipt Date: 20140103
  Transmission Date: 20141002
  Serious: Yes (Death)
  Sender: FDA-Public Use
  Company Number: US-BAYER-2013-158683

PATIENT
  Age: 71 Year
  Sex: Female
  Weight: 43.99 kg

DRUGS (3)
  1. ALEVE CAPLET [Suspect]
     Indication: PAIN
     Dosage: 1 DF, BID
     Route: 048
     Dates: end: 20130616
  2. METAMUCIL [Concomitant]
  3. LORATAB [Concomitant]

REACTIONS (3)
  - Haemorrhage [Fatal]
  - Emphysema [Fatal]
  - Cardiac disorder [Fatal]
